FAERS Safety Report 6745817-3 (Version None)
Quarter: 2010Q2

REPORT INFORMATION
  Report Type: 
  Country: None (occurrence: None)
  Receive Date: 20100528
  Receipt Date: 20100520
  Transmission Date: 20101027
  Serious: Yes (Hospitalization)
  Sender: FDA-Public Use
  Company Number: PHHO2010FR07683

PATIENT
  Sex: Female

DRUGS (1)
  1. ALDESLEUKIN C-ALDE+ [Suspect]
     Indication: ACUTE MYELOID LEUKAEMIA
     Dosage: NO TREATMENT

REACTIONS (7)
  - ERYSIPELAS [None]
  - HEADACHE [None]
  - INCISIONAL DRAINAGE [None]
  - INFLAMMATION [None]
  - NAUSEA [None]
  - STAPHYLOCOCCAL ABSCESS [None]
  - WOUND DEHISCENCE [None]
